FAERS Safety Report 16531880 (Version 1)
Quarter: 2019Q3

REPORT INFORMATION
  Report Type: Spontaneous
  Country: US (occurrence: US)
  Receive Date: 20190704
  Receipt Date: 20190704
  Transmission Date: 20191004
  Serious: Yes (Other)
  Sender: FDA-Public Use
  Company Number: US-ACCORD-136343

PATIENT
  Age: 58 Year
  Sex: Male

DRUGS (1)
  1. CLONAZEPAM ACCORD [Suspect]
     Active Substance: CLONAZEPAM
     Indication: SEIZURE
     Dosage: 1MG THREE TIMES DAILY
     Route: 048
     Dates: start: 201905, end: 201906

REACTIONS (6)
  - Muscle spasms [Not Recovered/Not Resolved]
  - Seizure [Not Recovered/Not Resolved]
  - Anxiety [Not Recovered/Not Resolved]
  - Product substitution issue [Unknown]
  - Insomnia [Not Recovered/Not Resolved]
  - Feeling abnormal [Not Recovered/Not Resolved]

NARRATIVE: CASE EVENT DATE: 201905
